FAERS Safety Report 6526245-2 (Version None)
Quarter: 2010Q1

REPORT INFORMATION
  Report Type: 
  Country: None (occurrence: None)
  Receive Date: 20100104
  Receipt Date: 20091228
  Transmission Date: 20100710
  Serious: Yes (Other)
  Sender: FDA-Public Use
  Company Number: ZW-GILEAD-2009-0026100

PATIENT
  Age: 35 Year
  Sex: Female

DRUGS (3)
  1. VIREAD [Suspect]
     Indication: HIV INFECTION
     Route: 048
     Dates: start: 20070801
  2. ZERIT [Concomitant]
     Indication: HIV INFECTION
     Route: 048
     Dates: start: 20070801
  3. EPIVIR [Concomitant]
     Indication: HIV INFECTION
     Route: 048
     Dates: start: 20070801

REACTIONS (1)
  - ABORTION SPONTANEOUS [None]
